FAERS Safety Report 14035429 (Version 1)
Quarter: 2017Q4

REPORT INFORMATION
  Report Type: Spontaneous
  Country: US (occurrence: US)
  Receive Date: 20171003
  Receipt Date: 20171003
  Transmission Date: 20180321
  Serious: Yes (Other)
  Sender: FDA-Public Use
  Company Number: US-ARALEZ PHARMACEUTICALS R+D INC.-2017-ARA-000621

PATIENT
  Sex: Female
  Weight: 48.07 kg

DRUGS (8)
  1. PEPCID [Concomitant]
     Active Substance: FAMOTIDINE
     Indication: GASTROOESOPHAGEAL REFLUX DISEASE
     Dosage: UNK
     Route: 048
     Dates: start: 201707
  2. PLAVIX [Concomitant]
     Active Substance: CLOPIDOGREL BISULFATE
     Indication: BLOOD CHOLESTEROL
     Route: 048
  3. ISOSORBIDE. [Concomitant]
     Active Substance: ISOSORBIDE
     Indication: SURGERY
     Route: 048
  4. BEVESPI AEROSPHERE [Concomitant]
     Active Substance: FORMOTEROL FUMARATE\GLYCOPYRROLATE
     Indication: HYPERSENSITIVITY
     Dosage: 0 ?G, BID
     Route: 055
     Dates: start: 201707
  5. BEVESPI AEROSPHERE [Concomitant]
     Active Substance: FORMOTEROL FUMARATE\GLYCOPYRROLATE
     Indication: GASTROOESOPHAGEAL REFLUX DISEASE
  6. LASIX [Concomitant]
     Active Substance: FUROSEMIDE
     Indication: FLUID RETENTION
     Route: 048
  7. WARFARIN [Concomitant]
     Active Substance: WARFARIN
     Indication: STENT PLACEMENT
     Route: 048
  8. METOPROLOL SUCCINATE. [Suspect]
     Active Substance: METOPROLOL SUCCINATE
     Indication: BLOOD PRESSURE MEASUREMENT
     Dosage: 25 MG, BID
     Route: 048

REACTIONS (5)
  - Coronary artery occlusion [Not Recovered/Not Resolved]
  - Arrhythmia [Not Recovered/Not Resolved]
  - Stent placement [Not Recovered/Not Resolved]
  - Vascular graft [Not Recovered/Not Resolved]
  - Aortic valve replacement [Not Recovered/Not Resolved]
